FAERS Safety Report 4867746-2 (Version None)
Quarter: 2005Q4

REPORT INFORMATION
  Report Type: 
  Country: None (occurrence: None)
  Receive Date: 20051228
  Receipt Date: 20051216
  Transmission Date: 20060501
  Serious: Yes (Hospitalization)
  Sender: FDA-Public Use
  Company Number: US-KINGPHARMUSA00001-K200501608

PATIENT
  Age: 82 Year
  Sex: Female

DRUGS (5)
  1. ALTACE [Suspect]
     Dosage: 5 MG, QD
     Route: 048
     Dates: end: 20050829
  2. TERALITHE [Suspect]
     Dosage: 800 MG, QD
     Route: 048
     Dates: end: 20050829
  3. LEPTICUR [Concomitant]
     Dosage: 20 MG, UNK
     Route: 048
     Dates: end: 20050829
  4. LERCAN [Concomitant]
     Dosage: 10 MG, UNK
     Route: 048
     Dates: end: 20050829
  5. REMINYL    /UNK/ [Concomitant]
     Dosage: 8 MG, UNK
     Route: 048
     Dates: end: 20050829

REACTIONS (12)
  - ANOREXIA [None]
  - ANTIPSYCHOTIC DRUG LEVEL ABOVE THERAPEUTIC [None]
  - BLOOD CREATININE INCREASED [None]
  - BLOOD UREA INCREASED [None]
  - CONFUSIONAL STATE [None]
  - CONVULSION [None]
  - DEHYDRATION [None]
  - DRUG INTERACTION [None]
  - GENERAL PHYSICAL HEALTH DETERIORATION [None]
  - HYPERTONIA [None]
  - OVERDOSE [None]
  - RENAL FAILURE [None]
